FAERS Safety Report 25180110 (Version 1)
Quarter: 2025Q2

REPORT INFORMATION
  Report Type: Spontaneous
  Country: US (occurrence: US)
  Receive Date: 20250409
  Receipt Date: 20250409
  Transmission Date: 20250716
  Serious: No
  Sender: GALPHARM INTERNATIONAL
  Company Number: US-PERRIGO-24US005813

PATIENT
  Age: 96 Year
  Sex: Female
  Weight: 58.05 kg

DRUGS (1)
  1. DEXTROMETHORPHAN HYDROBROMIDE\GUAIFENESIN [Suspect]
     Active Substance: DEXTROMETHORPHAN HYDROBROMIDE\GUAIFENESIN
     Indication: Seasonal allergy
     Route: 048
     Dates: start: 202405, end: 20240610

REACTIONS (3)
  - Wrong technique in product usage process [Recovered/Resolved]
  - Product use in unapproved indication [Recovered/Resolved]
  - Incorrect product administration duration [Recovered/Resolved]

NARRATIVE: CASE EVENT DATE: 20240501
